FAERS Safety Report 4477202-1 (Version None)
Quarter: 2004Q4

REPORT INFORMATION
  Report Type: 
  Country: None (occurrence: None)
  Receive Date: 20041018
  Receipt Date: 20041012
  Transmission Date: 20050328
  Serious: Yes (Hospitalization)
  Sender: FDA-Public Use
  Company Number: GB-MERCK-0410GBR00136

PATIENT
  Sex: Female

DRUGS (5)
  1. ATENOLOL [Concomitant]
     Route: 048
  2. PLAVIX [Suspect]
     Indication: MYOCARDIAL ISCHAEMIA
     Route: 048
     Dates: start: 20040801, end: 20040920
  3. DILTIAZEM HCL [Concomitant]
     Route: 048
  4. VIOXX [Suspect]
     Indication: ARTHRALGIA
     Route: 048
     Dates: start: 20040801, end: 20040920
  5. ZOCOR [Concomitant]
     Route: 048

REACTIONS (2)
  - GASTRIC ULCER [None]
  - HAEMATEMESIS [None]
